FAERS Safety Report 7351428-1 (Version None)
Quarter: 2011Q1

REPORT INFORMATION
  Report Type: 
  Country: None (occurrence: None)
  Receive Date: 20110304
  Receipt Date: 20110216
  Transmission Date: 20110831
  Serious: Yes (Life-Threatening, Hospitalization)
  Sender: FDA-Public Use
  Company Number: AUR-APL-2010-01799

PATIENT
  Age: 75 Year
  Sex: Male

DRUGS (3)
  1. METOPROLOL [Suspect]
     Indication: CARDIAC FAILURE
     Dosage: 100MG, DAILY
  2. SPIRONOLACTONE [Suspect]
     Indication: CARDIAC FAILURE
     Dosage: 25MG - DAILY
  3. RAMIPRIL [Suspect]
     Indication: CARDIAC FAILURE
     Dosage: 10MG, DAILY

REACTIONS (12)
  - RENAL FAILURE ACUTE [None]
  - LEFT VENTRICULAR FAILURE [None]
  - HYPOPHAGIA [None]
  - CARDIOGENIC SHOCK [None]
  - HAEMODIALYSIS [None]
  - HYPERKALAEMIA [None]
  - METABOLIC ACIDOSIS [None]
  - BLOOD PRESSURE DECREASED [None]
  - BRADYCARDIA [None]
  - DRUG INTERACTION [None]
  - HYPOTENSION [None]
  - HYPOVOLAEMIA [None]
